FAERS Safety Report 12781464 (Version 3)
Quarter: 2016Q4

REPORT INFORMATION
  Report Type: Spontaneous
  Country: JP (occurrence: JP)
  Receive Date: 20160926
  Receipt Date: 20161007
  Transmission Date: 20170207
  Serious: Yes (Death, Other)
  Sender: FDA-Public Use
  Company Number: JP-ALLERGAN-1669731US

PATIENT
  Age: 75 Year
  Sex: Female

DRUGS (14)
  1. NEOPAREN [Concomitant]
     Active Substance: AMINO ACIDS\DEXTROSE\ELECTROLYTES NOS
     Dosage: UNK, ML
  2. MEILAX [Concomitant]
     Active Substance: ETHYL LOFLAZEPATE
     Dosage: 1 MG, UNK
  3. ZOLPIDEM TARTRATE. [Concomitant]
     Active Substance: ZOLPIDEM TARTRATE
     Dosage: 5 MG, UNK
  4. BOTOX [Suspect]
     Active Substance: ONABOTULINUMTOXINA
     Indication: MUSCLE SPASTICITY
     Dosage: 25 IU, BID
     Route: 030
     Dates: start: 20160909, end: 20160909
  5. BOTOX [Suspect]
     Active Substance: ONABOTULINUMTOXINA
     Dosage: 25 IU, QID
     Route: 030
     Dates: start: 20160916, end: 20160916
  6. NEUPRO [Concomitant]
     Active Substance: ROTIGOTINE
     Dosage: 9 MG, UNK
  7. NEXIUM [Concomitant]
     Active Substance: ESOMEPRAZOLE MAGNESIUM
     Dosage: 10 MG, UNK
  8. PANTOSIN [Concomitant]
     Active Substance: PANTETHINE
     Dosage: 3 G, UNK
  9. MAGNESIUM OXIDE. [Concomitant]
     Active Substance: MAGNESIUM OXIDE
     Dosage: 3 G, UNK
  10. RHYTHMY [Concomitant]
     Active Substance: RILMAZAFONE HYDROCHLORIDE
     Dosage: 2 MG, UNK
  11. BOTOX [Suspect]
     Active Substance: ONABOTULINUMTOXINA
     Indication: MUSCLE SPASMS
     Dosage: 25 UNITS, SINGLE
     Route: 030
     Dates: start: 20160909, end: 20160909
  12. NEOPAREN [Concomitant]
     Active Substance: AMINO ACIDS\DEXTROSE\ELECTROLYTES NOS
     Dosage: UNK ML, UNK
  13. RIVASTACH [Concomitant]
     Active Substance: RIVASTIGMINE
     Dosage: 9 MG, UNK
  14. DEPAS [Concomitant]
     Active Substance: ETIZOLAM
     Dosage: 1 MG, UNK

REACTIONS (4)
  - Parkinson^s disease [Fatal]
  - Urinary tract infection [Fatal]
  - Sudden death [Fatal]
  - Pyrexia [Fatal]

NARRATIVE: CASE EVENT DATE: 20160919
